FAERS Safety Report 4614400-8 (Version None)
Quarter: 2005Q1

REPORT INFORMATION
  Report Type: 
  Country: None (occurrence: None)
  Receive Date: 20050315
  Receipt Date: 20050228
  Transmission Date: 20050727
  Serious: Yes (Hospitalization)
  Sender: FDA-Public Use
  Company Number: 2005BI000915

PATIENT
  Age: 45 Year
  Sex: Female
  Weight: 136.0791 kg

DRUGS (5)
  1. AVONEX [Suspect]
     Indication: MULTIPLE SCLEROSIS
     Dosage: 30 UG; QW; IM
     Route: 030
     Dates: start: 20030901, end: 20041231
  2. PAXIL [Concomitant]
  3. TOPAMAX [Concomitant]
  4. VITAMIN D [Concomitant]
  5. VITAMIN (NOS) [Concomitant]

REACTIONS (10)
  - BACK PAIN [None]
  - CONDITION AGGRAVATED [None]
  - FOOD ALLERGY [None]
  - MULTIPLE SCLEROSIS [None]
  - OEDEMA PERIPHERAL [None]
  - PAIN IN EXTREMITY [None]
  - PAIN IN JAW [None]
  - PRURITUS [None]
  - SINUSITIS [None]
  - SWELLING FACE [None]
